FAERS Safety Report 8762873 (Version 1)
Quarter: 2012Q4

REPORT INFORMATION
  Report Type: 
  Country: US (occurrence: US)
  Receive Date: 20120829
  Receipt Date: 20120829
  Transmission Date: 20130627
  Serious: Yes (Other)
  Sender: FDA-Public Use
  Company Number: US-PFIZER INC-2012207880

PATIENT
  Age: 70 Year
  Sex: Female

DRUGS (8)
  1. SUTENT [Suspect]
     Indication: RENAL CELL CARCINOMA
     Dosage: 50 mg, 1x/day
     Route: 048
     Dates: start: 2012
  2. DEXAMETHASONE [Concomitant]
     Dosage: UNK
  3. NUCYNTA [Concomitant]
     Dosage: UNK
  4. OMEPRAZOLE [Concomitant]
     Dosage: UNK
  5. COMPAZINE [Concomitant]
     Dosage: UNK
  6. OXYCODONE [Concomitant]
     Dosage: UNK
  7. TYLENOL [Concomitant]
     Dosage: UNK
  8. ASPIRIN [Concomitant]
     Dosage: 325 mg, as needed

REACTIONS (1)
  - Hypertension [Unknown]
